FAERS Safety Report 5879719-1 (Version None)
Quarter: 2008Q3

REPORT INFORMATION
  Report Type: 
  Country: None (occurrence: None)
  Receive Date: 20080912
  Receipt Date: 20080908
  Transmission Date: 20090109
  Serious: Yes (Other)
  Sender: FDA-Public Use
  Company Number: US-MERCK-0808USA00053

PATIENT
  Age: 15 Year
  Sex: Female

DRUGS (7)
  1. SINGULAIR [Suspect]
     Indication: ASTHMA
     Route: 048
  2. SINGULAIR [Suspect]
     Indication: RHINITIS ALLERGIC
     Route: 048
  3. [THERAPY UNSPECIFIED] [Concomitant]
     Route: 065
  4. CLARITIN [Concomitant]
     Route: 048
  5. NASONEX [Concomitant]
  6. PROVENTIL-HFA [Concomitant]
     Route: 065
  7. ADVAIR DISKUS 100/50 [Concomitant]

REACTIONS (4)
  - AGITATION [None]
  - IRRITABILITY [None]
  - SUICIDAL BEHAVIOUR [None]
  - SUICIDAL IDEATION [None]
